FAERS Safety Report 19303930 (Version 1)
Quarter: 2021Q2

REPORT INFORMATION
  Report Type: Spontaneous
  Country: US (occurrence: US)
  Receive Date: 20210525
  Receipt Date: 20210525
  Transmission Date: 20210717
  Serious: No
  Sender: FDA-Public Use
  Company Number: US-ROMARKLABS-2021-US-000003

PATIENT
  Age: 29 Year
  Sex: Female

DRUGS (5)
  1. ZYRTEC [Concomitant]
     Active Substance: CETIRIZINE HYDROCHLORIDE
     Indication: PRODUCT USED FOR UNKNOWN INDICATION
  2. NYSTATIN. [Concomitant]
     Active Substance: NYSTATIN
     Indication: PRODUCT USED FOR UNKNOWN INDICATION
  3. PREDNISONE. [Concomitant]
     Active Substance: PREDNISONE
     Indication: PRODUCT USED FOR UNKNOWN INDICATION
  4. K2?PLUS D3 [Concomitant]
     Indication: VITAMIN SUPPLEMENTATION
  5. ALINIA [Suspect]
     Active Substance: NITAZOXANIDE
     Indication: HELICOBACTER INFECTION
     Dosage: 1 TABLET BY MOUTH EVERY 12 HOURS FOR 10 DAYS
     Route: 048
     Dates: start: 20210110, end: 20210113

REACTIONS (4)
  - Wheezing [Recovered/Resolved]
  - Swelling of eyelid [Recovered/Resolved]
  - Abdominal discomfort [Recovered/Resolved]
  - Palpitations [Recovered/Resolved]

NARRATIVE: CASE EVENT DATE: 20210113
